FAERS Safety Report 17991388 (Version 2)
Quarter: 2020Q3

REPORT INFORMATION
  Report Type: Report from Study
  Country: CN (occurrence: CN)
  Receive Date: 20200707
  Receipt Date: 20200822
  Transmission Date: 20201103
  Serious: Yes (Other)
  Sender: FDA-Public Use
  Company Number: NVSC2020CN188916

PATIENT
  Age: 57 Year
  Sex: Female

DRUGS (1)
  1. ZYKADIA [Suspect]
     Active Substance: CERITINIB
     Indication: NON-SMALL CELL LUNG CANCER
     Dosage: 450 MG, QD (CAPSULE)
     Route: 048
     Dates: start: 20181127, end: 20200629

REACTIONS (4)
  - Malignant neoplasm progression [Not Recovered/Not Resolved]
  - Liver injury [Unknown]
  - Non-small cell lung cancer [Not Recovered/Not Resolved]
  - Diarrhoea [Recovered/Resolved]

NARRATIVE: CASE EVENT DATE: 20200530
